FAERS Safety Report 5307174-9 (Version None)
Quarter: 2007Q2

REPORT INFORMATION
  Report Type: 
  Country: None (occurrence: None)
  Receive Date: 20070425
  Receipt Date: 20070228
  Transmission Date: 20071010
  Serious: No
  Sender: FDA-Public Use
  Company Number: US-AMGEN-US213003

PATIENT
  Sex: Female

DRUGS (7)
  1. VECTIBIX [Suspect]
     Indication: COLORECTAL CANCER
     Route: 065
     Dates: start: 20070201
  2. VYTORIN [Concomitant]
     Route: 065
  3. REGLAN [Concomitant]
     Route: 065
  4. ASPIRIN [Concomitant]
     Route: 065
  5. PHENERGAN HCL [Concomitant]
  6. DECADRON [Concomitant]
     Route: 065
  7. ALOXI [Concomitant]
     Route: 065

REACTIONS (1)
  - DERMATITIS ACNEIFORM [None]
